FAERS Safety Report 4740900-6 (Version None)
Quarter: 2005Q3

REPORT INFORMATION
  Report Type: 
  Country: None (occurrence: None)
  Receive Date: 20050729
  Receipt Date: 20041210
  Transmission Date: 20060218
  Serious: Yes (Hospitalization)
  Sender: FDA-Public Use
  Company Number: US-2004-036468

PATIENT
  Age: 76 Year
  Sex: Female
  Weight: 117.9 kg

DRUGS (6)
  1. MAGNEVIST [Suspect]
     Indication: NUCLEAR MAGNETIC RESONANCE IMAGING
     Dosage: 20 ML, 1 DOSE, INTRAVENOUS
     Route: 042
     Dates: start: 20041119, end: 20041119
  2. LASIX [Concomitant]
  3. TOPROL-XL [Concomitant]
  4. PAXIL [Concomitant]
  5. ALTACE [Concomitant]
  6. AMARYL [Concomitant]

REACTIONS (4)
  - DIZZINESS [None]
  - MEMORY IMPAIRMENT [None]
  - OXYGEN SATURATION DECREASED [None]
  - WHEEZING [None]
